FAERS Safety Report 10948043 (Version 1)
Quarter: 2015Q1

REPORT INFORMATION
  Report Type: Spontaneous
  Country: US (occurrence: US)
  Receive Date: 20150324
  Receipt Date: 20150324
  Transmission Date: 20150721
  Serious: Yes (Death)
  Sender: FDA-Public Use
  Company Number: US-CIPLA LTD.-2015US02245

PATIENT

DRUGS (6)
  1. OXYCODONE [Suspect]
     Active Substance: OXYCODONE
  2. AMPHETAMINE [Suspect]
     Active Substance: AMPHETAMINE
  3. SERTRALINE [Suspect]
     Active Substance: SERTRALINE HYDROCHLORIDE
  4. MORPHINE [Suspect]
     Active Substance: MORPHINE
  5. CLOMIPRAMINE [Suspect]
     Active Substance: CLOMIPRAMINE
  6. PROMETHAZINE [Suspect]
     Active Substance: PROMETHAZINE\PROMETHAZINE HYDROCHLORIDE

REACTIONS (1)
  - Drug abuse [Fatal]
